FAERS Safety Report 24647556 (Version 1)
Quarter: 2024Q4

REPORT INFORMATION
  Report Type: Spontaneous
  Country: HK (occurrence: US)
  Receive Date: 20241121
  Receipt Date: 20241121
  Transmission Date: 20250115
  Serious: Yes (Other)
  Sender: MERCK
  Company Number: HK-009507513-2411USA005569

PATIENT
  Age: 69 Year
  Sex: Female

DRUGS (2)
  1. KEYTRUDA [Suspect]
     Active Substance: PEMBROLIZUMAB
     Indication: Neoplasm malignant
     Dosage: STRENGTH: 100MG/4ML
  2. PACLITAXEL [Suspect]
     Active Substance: PACLITAXEL
     Indication: Neoplasm malignant

REACTIONS (4)
  - Neuropathy peripheral [Unknown]
  - Pulmonary embolism [Unknown]
  - Radiation pneumonitis [Unknown]
  - Lung opacity [Unknown]
